FAERS Safety Report 18379823 (Version 1)
Quarter: 2020Q4

REPORT INFORMATION
  Report Type: Spontaneous
  Country: FR (occurrence: FR)
  Receive Date: 20201014
  Receipt Date: 20201014
  Transmission Date: 20210114
  Serious: Yes (Hospitalization)
  Sender: FDA-Public Use
  Company Number: FR-TEVA-2020-FR-1837222

PATIENT
  Age: 66 Year
  Sex: Male

DRUGS (6)
  1. VELMETIA 50 MG/1000 MG, COMPRIME PELLICULE [Suspect]
     Active Substance: METFORMIN HYDROCHLORIDE\SITAGLIPTIN PHOSPHATE
     Indication: TYPE 2 DIABETES MELLITUS
     Dosage: UNSPECIFIED
     Route: 048
     Dates: end: 20200529
  2. BISOPROLOL (FUMARATE ACIDE DE) [Concomitant]
     Active Substance: BISOPROLOL FUMARATE
     Dosage: UNSPECIFIED
     Route: 048
  3. NAPROXENE [Suspect]
     Active Substance: NAPROXEN
     Indication: SCIATICA
     Dosage: UNSPECIFIED
     Route: 048
     Dates: start: 20200519, end: 20200529
  4. DIAMICRON [Concomitant]
     Active Substance: GLICLAZIDE
     Dosage: UNSPECIFIED
     Route: 048
     Dates: end: 20200529
  5. ZYLORIC 300 MG, COMPRIME [Concomitant]
     Active Substance: ALLOPURINOL
     Dosage: UNSPECIFIED
     Route: 048
  6. TRIATEC 5 MG, GELULE [Suspect]
     Active Substance: RAMIPRIL
     Indication: HYPERTENSION
     Dosage: UNSPECIFIED
     Dates: end: 20200529

REACTIONS (1)
  - Acute kidney injury [Recovering/Resolving]

NARRATIVE: CASE EVENT DATE: 20200529
